FAERS Safety Report 13351768 (Version 1)
Quarter: 2017Q1

REPORT INFORMATION
  Report Type: Spontaneous
  Country: US (occurrence: US)
  Receive Date: 20170320
  Receipt Date: 20170320
  Transmission Date: 20170429
  Serious: Yes (Other)
  Sender: FDA-Public Use
  Company Number: US-DEPOMED, INC.-US-2017DEP000540

PATIENT

DRUGS (1)
  1. LAZANDA [Suspect]
     Active Substance: FENTANYL CITRATE
     Indication: CANCER PAIN
     Dosage: 100 ?G, ONE SPRAY PER EPISODE, CAN INCREASE 1 SPRAY IN EACH NOSTRIL AS NEEDED
     Route: 045
     Dates: start: 201703, end: 201703

REACTIONS (4)
  - Unevaluable event [Recovered/Resolved]
  - Drug ineffective [Recovered/Resolved]
  - Memory impairment [Recovered/Resolved]
  - Mental disorder [Recovered/Resolved]

NARRATIVE: CASE EVENT DATE: 201703
